FAERS Safety Report 6975234-2 (Version None)
Quarter: 2010Q3

REPORT INFORMATION
  Report Type: 
  Country: None (occurrence: None)
  Receive Date: 20100910
  Receipt Date: 20090216
  Transmission Date: 20110219
  Serious: No
  Sender: FDA-Public Use
  Company Number: US-WYE-H08247309

PATIENT
  Sex: Female
  Weight: 69.92 kg

DRUGS (3)
  1. PRISTIQ [Suspect]
     Indication: DEPRESSION
     Route: 048
     Dates: start: 20081101
  2. AMBIEN [Concomitant]
  3. ESTRADIOL [Concomitant]

REACTIONS (3)
  - CONDITION AGGRAVATED [None]
  - DRY EYE [None]
  - VISION BLURRED [None]
